FAERS Safety Report 18019081 (Version 1)
Quarter: 2020Q3

REPORT INFORMATION
  Report Type: Spontaneous
  Country: US (occurrence: US)
  Receive Date: 20200713
  Receipt Date: 20200713
  Transmission Date: 20201103
  Serious: No
  Sender: FDA-Public Use
  Company Number: None

PATIENT
  Sex: Male

DRUGS (2)
  1. ATOVAQUONE. [Suspect]
     Active Substance: ATOVAQUONE
     Indication: MALIGNANT MELANOMA
     Dates: start: 20190607, end: 20190719
  2. ATOVAQUONE. [Suspect]
     Active Substance: ATOVAQUONE
     Indication: C-KIT GENE MUTATION
     Dates: start: 20190607, end: 20190719

REACTIONS (1)
  - Liver function test increased [None]

NARRATIVE: CASE EVENT DATE: 20190719
